FAERS Safety Report 6463289-3 (Version None)
Quarter: 2009Q4

REPORT INFORMATION
  Report Type: 
  Country: None (occurrence: None)
  Receive Date: 20091130
  Receipt Date: 20090611
  Transmission Date: 20100525
  Serious: Yes (Other)
  Sender: FDA-Public Use
  Company Number: US-AMGEN-QUU351185

PATIENT
  Age: 41 Year
  Sex: Female

DRUGS (2)
  1. ENBREL [Suspect]
     Indication: RHEUMATOID ARTHRITIS
     Route: 058
     Dates: start: 20090201, end: 20090401
  2. PREDNISONE [Concomitant]
     Dates: start: 20090201

REACTIONS (2)
  - DIZZINESS [None]
  - MULTIPLE SCLEROSIS [None]
